FAERS Safety Report 7715387-1 (Version None)
Quarter: 2011Q3

REPORT INFORMATION
  Report Type: 
  Country: None (occurrence: None)
  Receive Date: 20110810
  Receipt Date: 20110523
  Transmission Date: 20111222
  Serious: Yes (Other)
  Sender: FDA-Public Use
  Company Number: 1000020852

PATIENT
  Age: 44 Year
  Sex: Female

DRUGS (6)
  1. SAVELLA [Suspect]
     Indication: FIBROMYALGIA
     Dosage: 12.5 MG (12.5 MG, 1 IN 1 D), ORAL 25 MG (12.5 MG, 2 IN 1 D), ORAL 50 MG (25 MG, 2 IN 1 D), ORAL
     Route: 048
     Dates: start: 20110411, end: 20110411
  2. SAVELLA [Suspect]
     Indication: FIBROMYALGIA
     Dosage: 12.5 MG (12.5 MG, 1 IN 1 D), ORAL 25 MG (12.5 MG, 2 IN 1 D), ORAL 50 MG (25 MG, 2 IN 1 D), ORAL
     Route: 048
     Dates: start: 20110412, end: 20110413
  3. SAVELLA [Suspect]
     Indication: FIBROMYALGIA
     Dosage: 12.5 MG (12.5 MG, 1 IN 1 D), ORAL 25 MG (12.5 MG, 2 IN 1 D), ORAL 50 MG (25 MG, 2 IN 1 D), ORAL
     Route: 048
     Dates: start: 20110414, end: 20110417
  4. FIORICET (BUTALBITAL, ACETAMINOHPEN, CAFFEINE) (BUTALBITAL, ACETAMINOP [Concomitant]
  5. SAVELLA [Suspect]
     Indication: FIBROMYALGIA
     Dosage: 100 MG (50 MG, 2 IN 1 D), ORAL
     Route: 048
     Dates: start: 20110418, end: 20110426
  6. ZANTAC (RANITIDINE) (RANITIDINE) [Concomitant]

REACTIONS (11)
  - DEPRESSION [None]
  - FATIGUE [None]
  - DRY MOUTH [None]
  - NAUSEA [None]
  - CONVULSION [None]
  - HYPERHIDROSIS [None]
  - INSOMNIA [None]
  - VOMITING [None]
  - HEADACHE [None]
  - CRYING [None]
  - DEPRESSED MOOD [None]
